FAERS Safety Report 22201053 (Version 1)
Quarter: 2023Q2

REPORT INFORMATION
  Report Type: Spontaneous
  Country: US (occurrence: US)
  Receive Date: 20230412
  Receipt Date: 20230412
  Transmission Date: 20230722
  Serious: Yes (Hospitalization, Other)
  Sender: FDA-Public Use
  Company Number: US-ASTELLAS-2023US011496

PATIENT
  Age: 65 Year
  Sex: Female

DRUGS (5)
  1. LEXISCAN [Suspect]
     Active Substance: REGADENOSON
     Indication: Cardiac stress test
     Dosage: UNK UNK, UNKNOWN FREQ.
     Route: 065
  2. LEXISCAN [Suspect]
     Active Substance: REGADENOSON
     Indication: Cardiac stress test
     Dosage: UNK UNK, UNKNOWN FREQ.
     Route: 065
  3. LEXISCAN [Suspect]
     Active Substance: REGADENOSON
     Indication: Cardiac stress test
     Dosage: UNK UNK, UNKNOWN FREQ.
     Route: 065
  4. LEXISCAN [Suspect]
     Active Substance: REGADENOSON
     Indication: Cardiac stress test
     Dosage: UNK UNK, UNKNOWN FREQ.
     Route: 065
  5. FABRAZYME [Suspect]
     Active Substance: AGALSIDASE BETA
     Indication: Fabry^s disease
     Dosage: 60.00, EVERY 2 WEEKS (Q2)
     Route: 041
     Dates: start: 20140113

REACTIONS (10)
  - Hand fracture [Recovered/Resolved]
  - Atrial fibrillation [Recovered/Resolved]
  - Blood pressure increased [Unknown]
  - Vein disorder [Recovered/Resolved]
  - Cardiac hypertrophy [Unknown]
  - Exercise tolerance decreased [Unknown]
  - Asthenia [Unknown]
  - Balance disorder [Unknown]
  - Vertigo [Unknown]
  - Blood pressure decreased [Unknown]

NARRATIVE: CASE EVENT DATE: 20161201
